FAERS Safety Report 7348101-2 (Version None)
Quarter: 2011Q1

REPORT INFORMATION
  Report Type: 
  Country: None (occurrence: None)
  Receive Date: 20110302
  Receipt Date: 20090318
  Transmission Date: 20110831
  Serious: Yes (Other)
  Sender: FDA-Public Use
  Company Number: UK-2009-00083

PATIENT
  Age: 44 Year
  Sex: Male

DRUGS (4)
  1. SIMVASTATIN [Suspect]
     Indication: HYPERCHOLESTEROLAEMIA
     Dosage: 40 MG (40  MG,), ORAL
     Route: 048
     Dates: start: 20090304
  2. QUININE(UNKNOWN) [Concomitant]
  3. ERYTHROMYCIN (UNKNOWN) [Concomitant]
  4. FLUCLOXACILLIN (UNKNOWN) [Concomitant]

REACTIONS (3)
  - AMNESIA [None]
  - RASH GENERALISED [None]
  - SKIN EXFOLIATION [None]
